FAERS Safety Report 5321152-5 (Version None)
Quarter: 2007Q2

REPORT INFORMATION
  Report Type: 
  Country: None (occurrence: None)
  Receive Date: 20070510
  Receipt Date: 20070502
  Transmission Date: 20071010
  Serious: Yes (Hospitalization)
  Sender: FDA-Public Use
  Company Number: HQWYE949702MAY07

PATIENT
  Age: 60 Year
  Sex: Male
  Weight: 81 kg

DRUGS (6)
  1. SIROLIMUS [Suspect]
     Indication: PROPHYLAXIS AGAINST TRANSPLANT REJECTION
     Dosage: 6 MG
     Route: 065
     Dates: start: 20050207
  2. FLUVASTATIN [Concomitant]
     Indication: HYPERCHOLESTEROLAEMIA
     Route: 048
     Dates: start: 20050708
  3. BISOPROLOL FUMARATE [Concomitant]
     Indication: HYPERTENSION
  4. AMLODIPINE [Concomitant]
     Indication: HYPERTENSION
     Route: 048
     Dates: start: 20040713
  5. PANTOPRAZOLE [Concomitant]
     Indication: PROPHYLAXIS
     Route: 048
     Dates: start: 20050816
  6. METAMIZOLE [Concomitant]
     Indication: PAIN MANAGEMENT
     Dosage: DOSE AND REGIMEN UNSPECIFIED
     Route: 048
     Dates: start: 20040426, end: 20070203

REACTIONS (3)
  - CONCOMITANT DISEASE PROGRESSION [None]
  - OSTEOARTHRITIS [None]
  - OSTEONECROSIS [None]
